FAERS Safety Report 5943580-7 (Version None)
Quarter: 2008Q4

REPORT INFORMATION
  Report Type: 
  Country: None (occurrence: None)
  Receive Date: 20081106
  Receipt Date: 20080502
  Transmission Date: 20090506
  Serious: No
  Sender: FDA-Public Use
  Company Number: A0727050A

PATIENT
  Age: 69 Year
  Sex: Female
  Weight: 68.2 kg

DRUGS (5)
  1. AMOXICILLIN [Suspect]
     Dosage: 1000MG TWICE PER DAY
     Route: 048
     Dates: start: 20070710
  2. BIAXIN [Suspect]
     Dosage: 500MG TWICE PER DAY
     Route: 048
     Dates: start: 20070710, end: 20070723
  3. LANSOPRAZOLE [Suspect]
     Dosage: 30MG TWICE PER DAY
     Route: 048
     Dates: start: 20070710
  4. LISINOPRIL [Concomitant]
     Indication: HYPERTENSION
     Route: 048
  5. METOPROLOL SUCCINATE [Concomitant]
     Indication: HYPERTENSION
     Route: 048

REACTIONS (5)
  - DRY MOUTH [None]
  - DYSGEUSIA [None]
  - EMOTIONAL DISTRESS [None]
  - TOOTH DISCOLOURATION [None]
  - TOOTH DISORDER [None]
